FAERS Safety Report 7536575-3 (Version None)
Quarter: 2011Q2

REPORT INFORMATION
  Report Type: 
  Country: None (occurrence: None)
  Receive Date: 20110609
  Receipt Date: 20110525
  Transmission Date: 20111010
  Serious: Yes (Hospitalization)
  Sender: FDA-Public Use
  Company Number: US-B.I. PHARMACEUTICALS,INC./RIDGEFIELD-2011-BP-13977BP

PATIENT

DRUGS (1)
  1. TWYNSTA [Suspect]
     Dosage: 9 TABLETS IN ONE DAY

REACTIONS (1)
  - INCORRECT DOSE ADMINISTERED [None]
